FAERS Safety Report 16617464 (Version 1)
Quarter: 2019Q3

REPORT INFORMATION
  Report Type: Report from Study
  Country: DE (occurrence: DE)
  Receive Date: 20190723
  Receipt Date: 20190723
  Transmission Date: 20191004
  Serious: Yes (Death, Other)
  Sender: FDA-Public Use
  Company Number: DE-MYLANLABS-ROCHE-260235

PATIENT
  Sex: Female
  Weight: 75 kg

DRUGS (3)
  1. XELODA [Concomitant]
     Active Substance: CAPECITABINE
     Indication: BREAST CANCER
     Dosage: UNK
     Route: 048
     Dates: start: 20010215, end: 20010217
  2. UNAT (TORASEMIDE) [Suspect]
     Active Substance: TORSEMIDE
     Indication: HYPERTENSION
     Dosage: 5 MILLIGRAM, QD
     Route: 048
     Dates: start: 20010118, end: 20010217
  3. MST                                /00021210/ [Concomitant]
     Indication: PAIN
     Dosage: 200 MILLIGRAM, QD
     Route: 048
     Dates: start: 200012

REACTIONS (2)
  - Pancreatitis [Recovered/Resolved]
  - Neoplasm progression [Fatal]

NARRATIVE: CASE EVENT DATE: 20010217
